FAERS Safety Report 4394578-4 (Version None)
Quarter: 2004Q3

REPORT INFORMATION
  Report Type: 
  Country: None (occurrence: None)
  Receive Date: 20040712
  Receipt Date: 20040621
  Transmission Date: 20050211
  Serious: Yes (Other)
  Sender: FDA-Public Use
  Company Number: FR-ROCHE-371600

PATIENT
  Sex: Female

DRUGS (1)
  1. XENICAL [Suspect]
     Indication: DRUG USE FOR UNKNOWN INDICATION
     Route: 065

REACTIONS (1)
  - HEPATITIS [None]
